FAERS Safety Report 25040562 (Version 2)
Quarter: 2025Q3

REPORT INFORMATION
  Report Type: Spontaneous
  Country: EU (occurrence: EU)
  Receive Date: 20250305
  Receipt Date: 20250810
  Transmission Date: 20251021
  Serious: Yes (Hospitalization)
  Sender: ALEXION PHARMACEUTICALS
  Company Number: EU-AstraZeneca-CH-00820030A

PATIENT
  Sex: Female
  Weight: 90 kg

DRUGS (1)
  1. DAPAGLIFLOZIN [Suspect]
     Active Substance: DAPAGLIFLOZIN
     Indication: Chronic kidney disease
     Dosage: 10 MILLIGRAM, QD
     Dates: end: 20250302

REACTIONS (3)
  - COVID-19 [Not Recovered/Not Resolved]
  - General physical health deterioration [Unknown]
  - Acidosis [Unknown]

NARRATIVE: CASE EVENT DATE: 20250201
